FAERS Safety Report 17782113 (Version 1)
Quarter: 2020Q2

REPORT INFORMATION
  Report Type: Spontaneous
  Country: US (occurrence: US)
  Receive Date: 20200513
  Receipt Date: 20200513
  Transmission Date: 20200714
  Serious: Yes (Hospitalization)
  Sender: FDA-Public Use
  Company Number: None

PATIENT
  Age: 61 Year
  Sex: Male
  Weight: 76 kg

DRUGS (1)
  1. WARFARIN (WARFARIN NA (EXELAN) 10MG TAB) [Suspect]
     Active Substance: WARFARIN SODIUM
     Indication: ATRIAL FIBRILLATION
     Dosage: DOSE OR AMOUNT: MG
     Dates: start: 20160524, end: 20191215

REACTIONS (7)
  - Gastric haemorrhage [None]
  - Iatrogenic injury [None]
  - Ulcer [None]
  - Polypectomy [None]
  - Anticoagulation drug level above therapeutic [None]
  - Gastrointestinal haemorrhage [None]
  - Haemoglobin decreased [None]

NARRATIVE: CASE EVENT DATE: 20191220
